FAERS Safety Report 14241824 (Version 1)
Quarter: 2017Q4

REPORT INFORMATION
  Report Type: Spontaneous
  Country: FR (occurrence: FR)
  Receive Date: 20171201
  Receipt Date: 20171201
  Transmission Date: 20180321
  Serious: Yes (Other)
  Sender: FDA-Public Use
  Company Number: FR-ORION CORPORATION ORION PHARMA-TREX2017-3836

PATIENT
  Age: 52 Year
  Sex: Male

DRUGS (4)
  1. RITUXIMAB. [Suspect]
     Active Substance: RITUXIMAB
     Dosage: INDUCTION DOSE ON DAY 0 AND 15
     Route: 042
  2. RITUXIMAB. [Suspect]
     Active Substance: RITUXIMAB
     Dosage: MAINTENANCE DOSE OF 375 MG/M2 AT MONTH 5 AND 1 GM AT MONTH 10
     Route: 042
  3. AZATHIOPRINE. [Suspect]
     Active Substance: AZATHIOPRINE
     Route: 065
  4. METHOTREXATE. [Suspect]
     Active Substance: METHOTREXATE
     Route: 065

REACTIONS (3)
  - Kaposi^s sarcoma [Recovering/Resolving]
  - Lymphopenia [Unknown]
  - Human herpesvirus 8 infection [Unknown]
